FAERS Safety Report 9670083 (Version 1)
Quarter: 2013Q4

REPORT INFORMATION
  Report Type: Spontaneous
  Country: US (occurrence: US)
  Receive Date: 20131105
  Receipt Date: 20131105
  Transmission Date: 20140711
  Serious: No
  Sender: FDA-Public Use
  Company Number: US-TEVA-442465USA

PATIENT
  Sex: Male
  Weight: 66.74 kg

DRUGS (2)
  1. QVAR [Suspect]
     Indication: ASTHMA
     Dosage: 1 PUFF DAILY
  2. ALBUTEROL [Concomitant]

REACTIONS (4)
  - Asthma [Not Recovered/Not Resolved]
  - Dyspnoea [Not Recovered/Not Resolved]
  - Cough [Not Recovered/Not Resolved]
  - Insomnia [Not Recovered/Not Resolved]
